FAERS Safety Report 18039946 (Version 1)
Quarter: 2020Q3

REPORT INFORMATION
  Report Type: Spontaneous
  Country: US (occurrence: US)
  Receive Date: 20200717
  Receipt Date: 20200717
  Transmission Date: 20201103
  Serious: Yes (Hospitalization, Disabling, Other)
  Sender: FDA-Public Use
  Company Number: US-PURDUE-USA-2020-0157638

PATIENT
  Sex: Female

DRUGS (8)
  1. TRAMADOL. [Suspect]
     Active Substance: TRAMADOL
     Indication: PAIN
     Route: 065
  2. OXYCONTIN [Suspect]
     Active Substance: OXYCODONE HYDROCHLORIDE
     Indication: PAIN
  3. MORPHINE SULFATE EXTENDED?RELEASE TABLETS (RHODES 74?769, 74?862) [Suspect]
     Active Substance: MORPHINE SULFATE
     Indication: MUSCLE SPASMS
  4. OXYCODONE/ ACETAMINOPHEN TABLETS [Suspect]
     Active Substance: ACETAMINOPHEN\OXYCODONE HYDROCHLORIDE
     Indication: PAIN
     Route: 048
  5. OXYCODONE/ ACETAMINOPHEN TABLETS [Suspect]
     Active Substance: ACETAMINOPHEN\OXYCODONE HYDROCHLORIDE
     Indication: MUSCLE SPASMS
  6. OXYCONTIN [Suspect]
     Active Substance: OXYCODONE HYDROCHLORIDE
     Indication: MUSCLE SPASMS
     Route: 048
  7. MORPHINE SULFATE EXTENDED?RELEASE TABLETS (RHODES 74?769, 74?862) [Suspect]
     Active Substance: MORPHINE SULFATE
     Indication: PAIN
     Route: 048
  8. TRAMADOL. [Suspect]
     Active Substance: TRAMADOL
     Indication: MUSCLE SPASMS

REACTIONS (57)
  - Walking disability [Unknown]
  - Gallbladder disorder [Unknown]
  - Mood altered [Unknown]
  - Anxiety [Unknown]
  - Constipation [Unknown]
  - Syncope [Unknown]
  - Learning disability [Unknown]
  - Cold sweat [Unknown]
  - Libido disorder [Unknown]
  - Migraine [Unknown]
  - Behaviour disorder [Unknown]
  - Laryngospasm [Unknown]
  - Asthenia [Unknown]
  - Arthritis [Unknown]
  - Dependence [Unknown]
  - Hepatic steatosis [Unknown]
  - Gastrointestinal disorder [Unknown]
  - Myalgia [Unknown]
  - Throat irritation [Unknown]
  - Somnolence [Unknown]
  - Agitation [Unknown]
  - Vomiting [Unknown]
  - Suicidal ideation [Unknown]
  - Restlessness [Unknown]
  - Tremor [Unknown]
  - Discomfort [Unknown]
  - Rhinorrhoea [Unknown]
  - Pain [Unknown]
  - Dysuria [Unknown]
  - Abdominal pain [Unknown]
  - Hyperhidrosis [Unknown]
  - Loss of consciousness [Unknown]
  - Laryngeal oedema [Unknown]
  - Erythema [Unknown]
  - Confusional state [Unknown]
  - Depression [Unknown]
  - Urinary retention [Unknown]
  - Insomnia [Unknown]
  - Drug tolerance [Unknown]
  - Nausea [Unknown]
  - Disability [Unknown]
  - Blood pressure fluctuation [Unknown]
  - Fluid retention [Unknown]
  - Blood urine present [Unknown]
  - Diarrhoea [Unknown]
  - Nervousness [Unknown]
  - Dyspepsia [Unknown]
  - Leukopenia [Unknown]
  - Hallucination [Unknown]
  - Arthralgia [Unknown]
  - Urinary tract infection [Unknown]
  - Malaise [Unknown]
  - Dry mouth [Unknown]
  - Seizure [Unknown]
  - Gastrointestinal pain [Unknown]
  - Dyspnoea [Unknown]
  - Dizziness [Unknown]
